FAERS Safety Report 10084151 (Version 1)
Quarter: 2014Q2

REPORT INFORMATION
  Report Type: Spontaneous
  Country: None (occurrence: None)
  Receive Date: 20140415
  Receipt Date: 20140415
  Transmission Date: 20141212
  Serious: Yes (Death, Life-Threatening, Hospitalization)
  Sender: FDA-Public Use
  Company Number: FK201401285

PATIENT
  Age: 71 Year
  Sex: Male

DRUGS (5)
  1. OXALIPLATIN (MANUFACTURER UNKNOWN) (OXALIPLATIN) (OXALIPLATIN) [Suspect]
     Indication: COLORECTAL CANCER STAGE IV
     Route: 042
  2. 5-FLUOROURACIL (FLUOROURACIL) [Concomitant]
  3. LEUCOVORIN (CALCIUM FOLINATE) [Concomitant]
  4. IRINOTECAN (IRINOTECAN) [Concomitant]
  5. BEVACIZUMAB (BEVACIZUMAB) [Concomitant]

REACTIONS (10)
  - Anaphylactic reaction [None]
  - Loss of consciousness [None]
  - Dizziness [None]
  - Shock [None]
  - Respiratory distress [None]
  - Cold sweat [None]
  - Angioedema [None]
  - Dysarthria [None]
  - Nausea [None]
  - Vomiting [None]
